FAERS Safety Report 24314983 (Version 2)
Quarter: 2024Q4

REPORT INFORMATION
  Report Type: Spontaneous
  Country: US (occurrence: US)
  Receive Date: 20240913
  Receipt Date: 20241029
  Transmission Date: 20250115
  Serious: Yes (Disabling)
  Sender: AMGEN
  Company Number: US-AMGEN-USASP2024178121

PATIENT
  Age: 71 Year
  Sex: Male

DRUGS (4)
  1. AIMOVIG [Suspect]
     Active Substance: ERENUMAB-AOOE
     Indication: Migraine
     Dosage: 70 MILLIGRAM, QMO
     Route: 058
     Dates: start: 20240510
  2. AIMOVIG [Suspect]
     Active Substance: ERENUMAB-AOOE
     Dosage: 70 MILLIGRAM, QMO
     Route: 058
  3. UBRELVY [Concomitant]
     Active Substance: UBROGEPANT
     Indication: Migraine
     Dosage: 100 MILLIGRAM
     Route: 065
  4. ATORVASTATIN [Concomitant]
     Active Substance: ATORVASTATIN
     Indication: Blood cholesterol
     Dosage: 40 MILLIGRAM, BID (1/2 TABLET TWICE A DAY)
     Route: 065

REACTIONS (6)
  - Disability [Unknown]
  - Injection site indentation [Unknown]
  - Device difficult to use [Unknown]
  - Drug dose omission by device [Unknown]
  - Wrong technique in product usage process [Unknown]
  - Product communication issue [Unknown]

NARRATIVE: CASE EVENT DATE: 20240610
